FAERS Safety Report 8346050-4 (Version None)
Quarter: 2012Q2

REPORT INFORMATION
  Report Type: 
  Country: None (occurrence: None)
  Receive Date: 20120509
  Receipt Date: 20120502
  Transmission Date: 20120825
  Serious: No
  Sender: FDA-Public Use
  Company Number: US-PFIZER INC-2012111183

PATIENT

DRUGS (2)
  1. DILTIAZEM HYDROCHLORIDE [Suspect]
     Indication: BLOOD PRESSURE MANAGEMENT
  2. AMLODIPINE BESYLATE [Suspect]
     Indication: BLOOD PRESSURE MANAGEMENT

REACTIONS (1)
  - FUNCTIONAL GASTROINTESTINAL DISORDER [None]
